FAERS Safety Report 25665474 (Version 1)
Quarter: 2025Q3

REPORT INFORMATION
  Report Type: Spontaneous
  Country: EU (occurrence: EU)
  Receive Date: 20250811
  Receipt Date: 20250811
  Transmission Date: 20251021
  Serious: Yes (Other)
  Sender: MYLAN
  Company Number: EU-MYLANLABS-2025M1006598

PATIENT
  Sex: Male

DRUGS (1)
  1. CLOZARIL [Suspect]
     Active Substance: CLOZAPINE
     Indication: Product used for unknown indication

REACTIONS (2)
  - Thrombocytopenia [Unknown]
  - Full blood count abnormal [Unknown]
